FAERS Safety Report 19258285 (Version 1)
Quarter: 2021Q2

REPORT INFORMATION
  Report Type: Spontaneous
  Country: US (occurrence: US)
  Receive Date: 20210514
  Receipt Date: 20210514
  Transmission Date: 20210717
  Serious: Yes (Death)
  Sender: FDA-Public Use
  Company Number: None

PATIENT
  Age: 72 Year
  Sex: Female

DRUGS (14)
  1. OMEPRAZOLE. [Concomitant]
     Active Substance: OMEPRAZOLE
  2. LISINOPRIL. [Concomitant]
     Active Substance: LISINOPRIL
  3. VITAMIN D [Concomitant]
     Active Substance: VITAMIN D NOS
  4. ALLOPURINOL. [Concomitant]
     Active Substance: ALLOPURINOL
  5. HYDROXYZINE [Concomitant]
     Active Substance: HYDROXYZINE HYDROCHLORIDE
  6. LEVOTHYROXINE. [Concomitant]
     Active Substance: LEVOTHYROXINE
  7. OLANZAPINE. [Concomitant]
     Active Substance: OLANZAPINE
  8. NOVOLOG [Concomitant]
     Active Substance: INSULIN ASPART
  9. PREDNISONE. [Concomitant]
     Active Substance: PREDNISONE
  10. MULTIVITAMIN [Concomitant]
     Active Substance: VITAMINS
  11. FUROSEMIDE. [Concomitant]
     Active Substance: FUROSEMIDE
  12. ONDANSETRON [Concomitant]
     Active Substance: ONDANSETRON
  13. JAKAFI [Suspect]
     Active Substance: RUXOLITINIB
     Indication: CHRONIC MYELOMONOCYTIC LEUKAEMIA
     Route: 048
     Dates: start: 20210322, end: 20210429
  14. FOLIC ACID. [Concomitant]
     Active Substance: FOLIC ACID

REACTIONS (1)
  - Death [None]

NARRATIVE: CASE EVENT DATE: 20210429
